FAERS Safety Report 16991201 (Version 1)
Quarter: 2019Q4

REPORT INFORMATION
  Report Type: Spontaneous
  Country: US (occurrence: US)
  Receive Date: 20190920
  Receipt Date: 20190920
  Transmission Date: 20200122
  Serious: Yes (Disabling)
  Sender: FDA-Public Use
  Company Number: None

PATIENT
  Age: 80 Year
  Sex: Male
  Weight: 67.13 kg

DRUGS (1)
  1. CORTISONE INJECTION [Suspect]
     Active Substance: HYDROCORTISONE
     Indication: ARTHRITIS
     Dosage: ?          OTHER ROUTE:ARTHRITIC KNEE?

REACTIONS (2)
  - Deformity [None]
  - Gait disturbance [None]

NARRATIVE: CASE EVENT DATE: 20190507
